FAERS Safety Report 23853762 (Version 2)
Quarter: 2024Q2

REPORT INFORMATION
  Report Type: Spontaneous
  Country: CA (occurrence: CA)
  Receive Date: 20240514
  Receipt Date: 20240610
  Transmission Date: 20240716
  Serious: Yes (Other)
  Sender: FDA-Public Use
  Company Number: CA-CURIUM-2023000972

PATIENT
  Age: 67 Year
  Sex: Female
  Weight: 75.0 kg

DRUGS (7)
  1. ULTRATAG RBC [Suspect]
     Active Substance: TECHNETIUM TC-99M RED BLOOD CELLS
     Indication: Multiple gated acquisition scan
     Route: 042
     Dates: start: 20231122, end: 20231122
  2. Lantheus generator [Concomitant]
     Indication: Multiple gated acquisition scan
     Route: 042
     Dates: start: 20231122, end: 20231122
  3. candesartan (4 mg) Tablet [Concomitant]
     Indication: Product used for unknown indication
     Route: 048
  4. hydrochlorothiazide (25 mg) Tablet [Concomitant]
     Indication: Product used for unknown indication
     Route: 048
  5. rosuvastatin (10 mg) Tablet [Concomitant]
     Indication: Product used for unknown indication
     Route: 048
  6. CALCIUM [Concomitant]
     Active Substance: CALCIUM
     Indication: Product used for unknown indication
     Route: 065
  7. VITAMIN D [Concomitant]
     Active Substance: VITAMIN D NOS
     Indication: Product used for unknown indication
     Route: 065

REACTIONS (5)
  - Lip swelling [Recovered/Resolved]
  - Peripheral swelling [Recovered/Resolved]
  - Urticaria [Recovered/Resolved]
  - Dizziness [Recovered/Resolved]
  - Drug monitoring procedure not performed [Recovered/Resolved]

NARRATIVE: CASE EVENT DATE: 20231122
